FAERS Safety Report 6436395-7 (Version None)
Quarter: 2009Q4

REPORT INFORMATION
  Report Type: 
  Country: None (occurrence: None)
  Receive Date: 20091111
  Receipt Date: 20091028
  Transmission Date: 20100525
  Serious: Yes (Other)
  Sender: FDA-Public Use
  Company Number: PHHY2009BR47292

PATIENT
  Age: 40 Year
  Sex: Male
  Weight: 70 kg

DRUGS (2)
  1. TEGRETOL [Suspect]
     Indication: MYALGIA
     Dosage: 200 MG/0.5 TABLET EVERY 12 HOURS
     Route: 048
     Dates: start: 20090801, end: 20091025
  2. TEGRETOL [Suspect]
     Dosage: 200 MG/ 1TABLET EVERY 12 HOURS
     Route: 048

REACTIONS (5)
  - HEADACHE [None]
  - LOCAL SWELLING [None]
  - LYMPHADENOPATHY [None]
  - PAIN [None]
  - PYREXIA [None]
